FAERS Safety Report 5463623-7 (Version None)
Quarter: 2007Q3

REPORT INFORMATION
  Report Type: 
  Country: None (occurrence: None)
  Receive Date: 20070919
  Receipt Date: 20070905
  Transmission Date: 20080115
  Serious: Yes (Hospitalization)
  Sender: FDA-Public Use
  Company Number: 2006S1000292

PATIENT
  Age: 68 Year
  Sex: Female
  Weight: 70 kg

DRUGS (15)
  1. CUBICIN [Suspect]
     Indication: ENTEROCOCCAL BACTERAEMIA
     Dosage: 350 MG; Q24H; IV
     Route: 042
     Dates: start: 20061118, end: 20061120
  2. VALSARTAN [Concomitant]
  3. ESOMEPRAZOLE MAGNESIUM [Concomitant]
  4. METHYLPREDNISOLONE [Concomitant]
  5. TACROLIMUS [Concomitant]
  6. SERTRALINE [Concomitant]
  7. URSODIOL [Concomitant]
  8. ESTROGEN/MEDROXYPROGESTERONE [Concomitant]
  9. AZATHIOPRINE [Concomitant]
  10. LEVOFLOXACIN [Concomitant]
  11. CILASTATIN W/IMIPENEM [Concomitant]
  12. VANCOMYCIN [Concomitant]
  13. METRONIDAZOLE [Concomitant]
  14. PREDNISONE [Concomitant]
  15. FOLIC ACID [Concomitant]

REACTIONS (8)
  - BLOOD CULTURE POSITIVE [None]
  - DRUG TOXICITY [None]
  - DYSPNOEA [None]
  - ENTEROCOCCAL INFECTION [None]
  - POLYNEUROPATHY [None]
  - PSEUDOMONAS INFECTION [None]
  - RENAL FAILURE ACUTE [None]
  - RHABDOMYOLYSIS [None]
